FAERS Safety Report 7378382-0 (Version None)
Quarter: 2011Q1

REPORT INFORMATION
  Report Type: 
  Country: None (occurrence: None)
  Receive Date: 20110328
  Receipt Date: 20101021
  Transmission Date: 20110831
  Serious: Yes (Hospitalization)
  Sender: FDA-Public Use
  Company Number: US-BAYER-201017018NA

PATIENT
  Sex: Female
  Weight: 59 kg

DRUGS (10)
  1. UNCODEABLE ^UNCLASSIFIABLE^ [Concomitant]
  2. YAZ [Suspect]
     Indication: CONTRACEPTION
     Dosage: UNK UNK, QD
     Route: 048
     Dates: start: 20080101, end: 20090101
  3. IBUPROFEN [Concomitant]
     Dates: start: 20070101
  4. CEPHALEXIN [Concomitant]
  5. HYDROCODONE [HYDROCODONE] [Concomitant]
  6. UNCODEABLE ^UNCLASSIFIABLE^ [Concomitant]
  7. MULTIVITAMINS W/FLUORIDE [Concomitant]
  8. TOPAMAX [Concomitant]
     Dates: start: 20070101
  9. FROVA [Concomitant]
  10. OXYCODONE [Concomitant]

REACTIONS (6)
  - ABDOMINAL PAIN UPPER [None]
  - GALLBLADDER DISORDER [None]
  - LIMB OPERATION [None]
  - CHOLELITHIASIS [None]
  - CHOLECYSTITIS CHRONIC [None]
  - ABDOMINAL PAIN [None]
